FAERS Safety Report 12565397 (Version 4)
Quarter: 2017Q2

REPORT INFORMATION
  Report Type: Spontaneous
  Country: GB (occurrence: GB)
  Receive Date: 20160718
  Receipt Date: 20170627
  Transmission Date: 20170830
  Serious: Yes (Hospitalization, Other)
  Sender: FDA-Public Use
  Company Number: GB-SUN PHARMACEUTICAL INDUSTRIES LTD-2016RR-120315

PATIENT
  Age: 44 Year
  Sex: Female

DRUGS (14)
  1. CLOPIXOL [Suspect]
     Active Substance: ZUCLOPENTHIXOL ACETATE
     Indication: MANIA
     Dosage: 150 MG
     Route: 030
     Dates: start: 20150412
  2. ABILIFY [Suspect]
     Active Substance: ARIPIPRAZOLE
     Indication: BIPOLAR I DISORDER
     Dosage: 10 MG, UNK
     Route: 065
     Dates: start: 20150330
  3. ABILIFY [Suspect]
     Active Substance: ARIPIPRAZOLE
     Dosage: 15 MG, QD
     Route: 065
     Dates: start: 20150407
  4. CLOPIXOL [Suspect]
     Active Substance: ZUCLOPENTHIXOL ACETATE
     Dosage: 100 MG
     Route: 030
     Dates: start: 20150413, end: 20150413
  5. LORAZEPAM. [Suspect]
     Active Substance: LORAZEPAM
     Indication: PRODUCT USED FOR UNKNOWN INDICATION
     Dosage: 4 MG
     Route: 030
     Dates: start: 20150401, end: 20150402
  6. ABILIFY [Suspect]
     Active Substance: ARIPIPRAZOLE
     Dosage: 15 MG, DAILY
     Route: 048
     Dates: start: 20150130, end: 20150413
  7. CLOPIXOL [Suspect]
     Active Substance: ZUCLOPENTHIXOL ACETATE
     Dosage: 50 MG
     Route: 030
     Dates: start: 20150331, end: 20150331
  8. CLOPIXOL [Suspect]
     Active Substance: ZUCLOPENTHIXOL ACETATE
     Dosage: 150 MG
     Route: 030
     Dates: start: 20150412, end: 20150412
  9. CLOPIXOL [Suspect]
     Active Substance: ZUCLOPENTHIXOL ACETATE
     Dosage: 100 MG
     Route: 030
     Dates: start: 20150402, end: 20150402
  10. CLONAZEPAM. [Suspect]
     Active Substance: CLONAZEPAM
     Indication: PRODUCT USED FOR UNKNOWN INDICATION
     Dosage: 1 MG, TID
     Route: 048
     Dates: start: 20150329, end: 20150413
  11. LORAZEPAM. [Suspect]
     Active Substance: LORAZEPAM
     Dosage: 4 MG, QD
     Route: 030
     Dates: start: 20150402, end: 20150402
  12. OLANZAPINE. [Suspect]
     Active Substance: OLANZAPINE
     Indication: PRODUCT USED FOR UNKNOWN INDICATION
     Dosage: UP TO 20MG AS REQUIRED
     Route: 048
     Dates: start: 20150330, end: 20150412
  13. CLOPIXOL [Suspect]
     Active Substance: ZUCLOPENTHIXOL ACETATE
     Dosage: 100 MG
     Route: 030
     Dates: start: 20150401, end: 20150401
  14. ABILIFY [Suspect]
     Active Substance: ARIPIPRAZOLE
     Dosage: 20 MG, QD
     Route: 065
     Dates: start: 20150409, end: 20150413

REACTIONS (3)
  - Neutropenia [Recovered/Resolved]
  - Medication error [Recovered/Resolved]
  - Prescribed overdose [Recovered/Resolved]

NARRATIVE: CASE EVENT DATE: 20150414
